FAERS Safety Report 9773676 (Version 2)
Quarter: 2013Q4

REPORT INFORMATION
  Report Type: Spontaneous
  Country: US (occurrence: US)
  Receive Date: 20131219
  Receipt Date: 20131219
  Transmission Date: 20140711
  Serious: No
  Sender: FDA-Public Use
  Company Number: US-MYLANLABS-2013S1023537

PATIENT
  Age: 61 Year
  Sex: Male
  Weight: 74.62 kg

DRUGS (13)
  1. METOPROLOL TARTRATE TABLETS, USP [Suspect]
     Indication: MYOCARDIAL INFARCTION
     Route: 048
     Dates: start: 20130411, end: 201305
  2. METOPROLOL TARTRATE TABLETS, USP [Suspect]
     Indication: MYOCARDIAL INFARCTION
     Route: 048
     Dates: start: 20130411, end: 201305
  3. METOPROLOL TARTRATE TABLETS, USP [Suspect]
     Indication: MYOCARDIAL INFARCTION
     Route: 048
     Dates: start: 201305, end: 20131021
  4. METOPROLOL TARTRATE TABLETS, USP [Suspect]
     Indication: MYOCARDIAL INFARCTION
     Route: 048
     Dates: start: 201305, end: 20131021
  5. ATORVASTATIN CALCIUM TABLETS [Suspect]
     Indication: MYOCARDIAL INFARCTION
     Route: 048
     Dates: start: 20130409, end: 20131021
  6. PROZAC [Concomitant]
     Indication: DEPRESSION
     Route: 048
     Dates: start: 20130905
  7. LITHIUM [Concomitant]
     Indication: DEPRESSION
     Route: 048
     Dates: start: 20130718
  8. PRISTIQ [Concomitant]
     Indication: DEPRESSION
     Route: 048
     Dates: end: 201309
  9. ALPRAZOLAM [Concomitant]
     Route: 048
     Dates: start: 20130710
  10. DEPLIN [Concomitant]
     Route: 048
     Dates: start: 20130508
  11. EFFIENT [Concomitant]
  12. ASPIRIN [Concomitant]
  13. LISINOPRIL [Concomitant]

REACTIONS (4)
  - Depression [Recovered/Resolved]
  - Anxiety [Recovered/Resolved]
  - Weight decreased [Recovering/Resolving]
  - Fatigue [Recovering/Resolving]
